FAERS Safety Report 25830784 (Version 2)
Quarter: 2025Q4

REPORT INFORMATION
  Report Type: Spontaneous
  Country: US (occurrence: US)
  Receive Date: 20250922
  Receipt Date: 20251001
  Transmission Date: 20260117
  Serious: Yes (Other)
  Sender: AUROBINDO
  Company Number: US-AUROBINDO-AUR-APL-2025-047510

PATIENT
  Age: 59 Year
  Sex: Male

DRUGS (4)
  1. AMPHOTERICIN B [Suspect]
     Active Substance: AMPHOTERICIN B
     Indication: Candida infection
     Dosage: UNK
     Route: 065
  2. AMPHOTERICIN B [Suspect]
     Active Substance: AMPHOTERICIN B
     Indication: Candida infection
  3. MICAFUNGIN [Suspect]
     Active Substance: MICAFUNGIN SODIUM
     Indication: Candida infection
     Dosage: UNK
     Route: 065
  4. MICAFUNGIN [Suspect]
     Active Substance: MICAFUNGIN SODIUM
     Indication: Candida infection

REACTIONS (1)
  - Drug ineffective [Unknown]
